FAERS Safety Report 19085557 (Version 1)
Quarter: 2021Q2

REPORT INFORMATION
  Report Type: Spontaneous
  Country: CN (occurrence: CN)
  Receive Date: 20210401
  Receipt Date: 20210401
  Transmission Date: 20210717
  Serious: Yes (Other)
  Sender: FDA-Public Use
  Company Number: CN-BAXTER-2021BAX006054

PATIENT
  Age: 42 Year
  Sex: Female
  Weight: 56 kg

DRUGS (25)
  1. 0.9% SODIUM CHLORIDE INJECTION [Suspect]
     Active Substance: SODIUM CHLORIDE
     Dosage: FOURTH EC REGIMEN CHEMOTHERAPY, 0.9% NS 250 ML+ DOXORUBICIN HYDROCHLORIDE LIPOSOME 150 MG, DAY 1
     Route: 041
     Dates: start: 20210221, end: 20210221
  2. DOXORUBICIN HYDROCHLORIDE LIPOSOME [Suspect]
     Active Substance: DOXORUBICIN HYDROCHLORIDE
     Dosage: FOURTH EC REGIMEN CHEMOTHERAPY, 0.9% NS 250 ML+ DOXORUBICIN HYDROCHLORIDE LIPOSOME 150 MG, DAY 1
     Route: 041
     Dates: start: 20210221, end: 20210221
  3. CIMETIDINE [Suspect]
     Active Substance: CIMETIDINE
     Dosage: 0.9% NS + CIMETIDINE INJECTION, DOSE REINTRODUCED
     Route: 041
     Dates: start: 202103
  4. DOXORUBICIN HYDROCHLORIDE LIPOSOME [Suspect]
     Active Substance: DOXORUBICIN HYDROCHLORIDE
     Indication: BREAST CANCER
     Dosage: 1 TO 3 CYCLES OF EC CHEMOTHERAPY, 0.9% NS + DOXORUBICIN HYDROCHLORIDE LIPOSOME
     Route: 041
  5. 0.9% SODIUM CHLORIDE INJECTION [Suspect]
     Active Substance: SODIUM CHLORIDE
     Indication: MEDICATION DILUTION
     Dosage: 1 TO 3 CYCLES OF EC CHEMOTHERAPY, CYCLOPHOSPHAMIDE+ 0.9% NS
     Route: 041
  6. 0.9% SODIUM CHLORIDE INJECTION [Suspect]
     Active Substance: SODIUM CHLORIDE
     Dosage: DOSE REINTRODUCED, 0.9% NS + DOXORUBICIN HYDROCHLORIDE LIPOSOME
     Route: 041
     Dates: start: 202103
  7. 5% GLUCOSE  INJECTION [Suspect]
     Active Substance: DEXTROSE
     Indication: MEDICATION DILUTION
     Dosage: 5% GS 500ML + VITAMIN C INJECTION 1 G + VITAMIN B6 INJECTION 100 MG
     Route: 041
     Dates: start: 20210221, end: 20210221
  8. ENDOXAN [Suspect]
     Active Substance: CYCLOPHOSPHAMIDE
     Indication: BREAST CANCER
     Dosage: PAST DRUG
     Route: 065
  9. 0.9% SODIUM CHLORIDE INJECTION [Suspect]
     Active Substance: SODIUM CHLORIDE
     Dosage: FOURTH EC REGIMEN CHEMOTHERAPY, CYCLOPHOSPHAMIDE 1 G + 0.9% NS 250 ML
     Route: 041
     Dates: start: 20210221, end: 20210221
  10. DOXORUBICIN HYDROCHLORIDE LIPOSOME [Suspect]
     Active Substance: DOXORUBICIN HYDROCHLORIDE
     Dosage: 0.9% NS + DOXORUBICIN HYDROCHLORIDE LIPOSOME, DOSE REINTRODUCED
     Route: 041
     Dates: start: 202103
  11. ENDOXAN [Suspect]
     Active Substance: CYCLOPHOSPHAMIDE
     Dosage: DOSE REINTRODUCED, CYCLOPHOSPHAMIDE+ 0.9% NS
     Route: 041
     Dates: start: 202103
  12. 0.9% SODIUM CHLORIDE INJECTION [Suspect]
     Active Substance: SODIUM CHLORIDE
     Dosage: 1 TO 3 CYCLES OF EC CHEMOTHERAPY, 0.9% NS + DOXORUBICIN HYDROCHLORIDE LIPOSOME
     Route: 041
  13. 0.9% SODIUM CHLORIDE INJECTION [Suspect]
     Active Substance: SODIUM CHLORIDE
     Dosage: 0.9% NS 250ML + CIMETIDINE INJECTION 0.2G
     Route: 041
     Dates: start: 20210221, end: 20210221
  14. VITAMIN C [Suspect]
     Active Substance: ASCORBIC ACID
     Indication: VITAMIN SUPPLEMENTATION
     Dosage: 5% GS 500ML + VITAMIN C INJECTION 1 G + VITAMIN B6 INJECTION 100 MG, ST
     Route: 041
     Dates: start: 20210221, end: 20210221
  15. TROPISETRON HYDROCHLORIDE [Suspect]
     Active Substance: TROPISETRON HYDROCHLORIDE
     Indication: NAUSEA
     Route: 040
     Dates: start: 20210221, end: 20210221
  16. TROPISETRON HYDROCHLORIDE [Suspect]
     Active Substance: TROPISETRON HYDROCHLORIDE
     Indication: VOMITING
     Dosage: DOSE REINTRODUCED
     Route: 040
     Dates: start: 202103
  17. ENDOXAN [Suspect]
     Active Substance: CYCLOPHOSPHAMIDE
     Dosage: FOURTH EC REGIMEN CHEMOTHERAPY, CYCLOPHOSPHAMIDE 1 G+ 0.9% NS 250 ML
     Route: 041
     Dates: start: 20210221, end: 20210221
  18. 0.9% SODIUM CHLORIDE INJECTION [Suspect]
     Active Substance: SODIUM CHLORIDE
     Dosage: DOSE REINTRODUCED, 0.9% NS + CIMETIDINE INJECTION
     Route: 041
     Dates: start: 202103
  19. CIMETIDINE [Suspect]
     Active Substance: CIMETIDINE
     Indication: PROPHYLAXIS
     Dosage: 0.9% NS 250ML + CIMETIDINE INJECTION 0.2G
     Route: 041
     Dates: start: 20210221, end: 20210221
  20. ENDOXAN [Suspect]
     Active Substance: CYCLOPHOSPHAMIDE
     Dosage: 1 TO 3 CYCLES OF EC CHEMOTHERAPY, CYCLOPHOSPHAMIDE+ 0.9% NS
     Route: 041
  21. VITAMIN C [Suspect]
     Active Substance: ASCORBIC ACID
     Dosage: 5% GS + VITAMIN C INJECTION + VITAMIN B6 INJECTION, DOSE REINTRODUCED
     Route: 041
     Dates: start: 202103
  22. VITAMIN B6 [Suspect]
     Active Substance: PYRIDOXINE HYDROCHLORIDE
     Indication: VITAMIN SUPPLEMENTATION
     Dosage: 5% GS 500ML + VITAMIN C INJECTION 1 G + VITAMIN B6 INJECTION 100 MG
     Route: 041
     Dates: start: 20210221, end: 20210221
  23. 0.9% SODIUM CHLORIDE INJECTION [Suspect]
     Active Substance: SODIUM CHLORIDE
     Dosage: DOSE REINTRODUCED, CYCLOPHOSPHAMIDE+ 0.9% NS
     Route: 041
     Dates: start: 202103
  24. 5% GLUCOSE  INJECTION [Suspect]
     Active Substance: DEXTROSE
     Dosage: 5% GS + VITAMIN C INJECTION + VITAMIN B6 INJECTION, DOSE REINTRODUCED
     Route: 041
     Dates: start: 202103
  25. VITAMIN B6 [Suspect]
     Active Substance: PYRIDOXINE HYDROCHLORIDE
     Dosage: 5% GS + VITAMIN C INJECTION + VITAMIN B6 INJECTION, DOSE REINTRODUCED
     Route: 041
     Dates: start: 202103

REACTIONS (2)
  - Myelosuppression [Recovered/Resolved]
  - Myelosuppression [Recovered/Resolved]

NARRATIVE: CASE EVENT DATE: 20210302
